FAERS Safety Report 5179735-1 (Version None)
Quarter: 2006Q4

REPORT INFORMATION
  Report Type: 
  Country: None (occurrence: None)
  Receive Date: 20061211
  Receipt Date: 20061128
  Transmission Date: 20070319
  Serious: Yes (Other)
  Sender: FDA-Public Use
  Company Number: 2006147059

PATIENT
  Age: 55 Year
  Sex: Female
  Weight: 57.1532 kg

DRUGS (5)
  1. CELEBREX [Suspect]
     Indication: ARTHRITIS
     Dosage: (200 MG),ORAL
     Route: 048
     Dates: start: 20061127, end: 20061128
  2. CELEBREX [Suspect]
     Indication: MUSCULOSKELETAL PAIN
     Dosage: (200 MG),ORAL
     Route: 048
     Dates: start: 20061127, end: 20061128
  3. PREMARIN [Concomitant]
  4. ACTONEL [Concomitant]
  5. PREVACID [Concomitant]

REACTIONS (4)
  - BLOOD PRESSURE INCREASED [None]
  - HEADACHE [None]
  - HEART RATE INCREASED [None]
  - PHARYNGEAL OEDEMA [None]
